FAERS Safety Report 4639814-1 (Version None)
Quarter: 2005Q2

REPORT INFORMATION
  Report Type: 
  Country: None (occurrence: None)
  Receive Date: 20050420
  Receipt Date: 20050408
  Transmission Date: 20051028
  Serious: Yes (Other)
  Sender: FDA-Public Use
  Company Number: GB-JNJFOC-20050402425

PATIENT
  Sex: Female
  Weight: 73 kg

DRUGS (9)
  1. REMICADE [Suspect]
     Indication: RHEUMATOID ARTHRITIS
     Route: 042
  2. LANSOPRAZOLE [Concomitant]
  3. METHOTREXATE [Concomitant]
  4. FOLIC ACID [Concomitant]
  5. FERROUS SULFATE TAB [Concomitant]
  6. OXYBUTYMIN [Concomitant]
  7. IBUPROFEN [Concomitant]
  8. CO-CODAMOL [Concomitant]
  9. CO-CODAMOL [Concomitant]

REACTIONS (3)
  - MOBILITY DECREASED [None]
  - PAIN IN EXTREMITY [None]
  - SKIN ULCER [None]
